FAERS Safety Report 15326289 (Version 1)
Quarter: 2018Q3

REPORT INFORMATION
  Report Type: Report from Study
  Country: None (occurrence: US)
  Receive Date: 20180828
  Receipt Date: 20180828
  Transmission Date: 20181010
  Serious: Yes (Other)
  Sender: FDA-Public Use
  Company Number: US-ABBVIE-18K-163-2463058-00

PATIENT
  Age: 33 Year
  Sex: Female

DRUGS (1)
  1. HUMIRA [Suspect]
     Active Substance: ADALIMUMAB
     Indication: CROHN^S DISEASE
     Route: 058

REACTIONS (7)
  - Hyperhidrosis [Recovering/Resolving]
  - Stress [Recovering/Resolving]
  - Injection site pain [Recovering/Resolving]
  - Crohn^s disease [Recovering/Resolving]
  - Mobility decreased [Recovering/Resolving]
  - Food intolerance [Recovering/Resolving]
  - Blindness [Not Recovered/Not Resolved]

NARRATIVE: CASE EVENT DATE: 201808
